FAERS Safety Report 4381871-4 (Version None)
Quarter: 2004Q2

REPORT INFORMATION
  Report Type: 
  Country: None (occurrence: None)
  Receive Date: 20040615
  Receipt Date: 20040603
  Transmission Date: 20050107
  Serious: Yes (Hospitalization, Disabling)
  Sender: FDA-Public Use
  Company Number: 03P-083-0214989-00

PATIENT
  Age: 61 Year
  Sex: Female
  Weight: 56 kg

DRUGS (5)
  1. HUMIRA [Suspect]
     Indication: RHEUMATOID ARTHRITIS
     Dosage: 1 IN 2 WK, SUBCUTANEOUS
     Route: 058
     Dates: start: 20030205, end: 20030305
  2. HYDROXYCHLOROQUINE PHOSPHATE [Concomitant]
  3. METHOTREXATE [Concomitant]
  4. LEFLUNOMIDE [Concomitant]
  5. METHYLPREDNISOLONE [Concomitant]

REACTIONS (12)
  - BLOOD ALBUMIN DECREASED [None]
  - BLOOD CHOLINESTERASE DECREASED [None]
  - BLOOD UREA INCREASED [None]
  - CREATINE PHOSPHOKINASE DECREASED [None]
  - ESCHERICHIA URINARY TRACT INFECTION [None]
  - GUILLAIN-BARRE SYNDROME [None]
  - HELICOBACTER INFECTION [None]
  - HYPERGLYCAEMIA [None]
  - INFLUENZA [None]
  - IRON DEFICIENCY ANAEMIA [None]
  - LEUKOCYTOSIS [None]
  - MORGANELLA INFECTION [None]
